FAERS Safety Report 5409300-X (Version None)
Quarter: 2007Q3

REPORT INFORMATION
  Report Type: 
  Country: None (occurrence: None)
  Receive Date: 20070807
  Receipt Date: 20070807
  Transmission Date: 20080115
  Serious: Yes (Life-Threatening)
  Sender: FDA-Public Use
  Company Number: None

PATIENT
  Age: 55 Year
  Sex: Male

DRUGS (2)
  1. LEVOFLOXACIN [Suspect]
     Indication: CELLULITIS
     Dosage: 500MG DAILY PO
     Route: 048
     Dates: start: 20070701, end: 20070705
  2. GLYBURIDE [Concomitant]

REACTIONS (2)
  - IMPAIRED DRIVING ABILITY [None]
  - TOXIC EPIDERMAL NECROLYSIS [None]
